FAERS Safety Report 9958672 (Version 1)
Quarter: 2014Q1

REPORT INFORMATION
  Report Type: Spontaneous
  Country: US (occurrence: None)
  Receive Date: 20140228
  Receipt Date: 20140228
  Transmission Date: 20141002
  Serious: Yes (Death)
  Sender: FDA-Public Use
  Company Number: None

PATIENT
  Age: 72 Year
  Sex: Male

DRUGS (20)
  1. GALANTAMINE HYDROBROMIDE [Suspect]
     Indication: MEMORY IMPAIRMENT
     Route: 048
     Dates: start: 20130829, end: 20130830
  2. DIGOXIN [Concomitant]
  3. DULOXETINE [Concomitant]
  4. TEMAZEPAM [Concomitant]
  5. ASPIRIN [Concomitant]
  6. DIPHENHYDRAMINE [Concomitant]
  7. LANSOPRAZOLE [Concomitant]
  8. POTASSIUM CHLORIDE [Concomitant]
  9. ATENOLOL [Concomitant]
  10. FUROSEMIDE [Concomitant]
  11. ISOSORBIDE [Concomitant]
  12. LEVOTHYROXINE [Concomitant]
  13. LISINOPRIL [Concomitant]
  14. SENNOSIDES [Concomitant]
  15. INSULIN [Concomitant]
  16. SIMVASTATIN [Concomitant]
  17. CRANBERRY [Concomitant]
  18. VIT D3 [Concomitant]
  19. VITAMIN B-COMPLEX [Concomitant]
  20. FISH OIL [Concomitant]

REACTIONS (1)
  - Convulsion [None]
